FAERS Safety Report 17015052 (Version 1)
Quarter: 2019Q4

REPORT INFORMATION
  Report Type: Spontaneous
  Country: US (occurrence: US)
  Receive Date: 20191111
  Receipt Date: 20191111
  Transmission Date: 20200122
  Serious: Yes (Hospitalization, Other)
  Sender: FDA-Public Use
  Company Number: US-ACTELION-A-CH2019-197642

PATIENT
  Age: 48 Year
  Sex: Male

DRUGS (2)
  1. VELETRI [Suspect]
     Active Substance: EPOPROSTENOL
     Indication: ACUTE RESPIRATORY FAILURE
     Dosage: UNK
     Route: 042
  2. METHYLENE BLUE. [Concomitant]
     Active Substance: METHYLENE BLUE

REACTIONS (10)
  - Encephalopathy [Unknown]
  - Nervous system disorder [Recovered/Resolved]
  - Tracheostomy [Unknown]
  - Gastrostomy [Unknown]
  - Cerebrovascular accident [Unknown]
  - Plasmapheresis [Unknown]
  - Renal disorder [Recovered/Resolved]
  - Thrombocytopenia [Unknown]
  - Pneumonia [Recovered/Resolved]
  - Multiple organ dysfunction syndrome [Unknown]
